FAERS Safety Report 4367850-1 (Version None)
Quarter: 2004Q2

REPORT INFORMATION
  Report Type: 
  Country: None (occurrence: None)
  Receive Date: 20040601
  Receipt Date: 20040601
  Transmission Date: 20050107
  Serious: Yes (Life-Threatening, Hospitalization, Disabling)
  Sender: FDA-Public Use
  Company Number: None

PATIENT
  Age: 59 Year
  Sex: Male
  Weight: 102.0593 kg

DRUGS (2)
  1. HEPARIN [Suspect]
     Indication: EMBOLIC STROKE
     Dosage: 1250 UNITS PER HOURS INTRAVENOUS
     Route: 042
     Dates: start: 20040514, end: 20040516
  2. WARFARIN SODIUM [Suspect]
     Indication: EMBOLIC STROKE
     Dosage: 7.5 MG DAILY ORAL
     Route: 048
     Dates: start: 20040515, end: 20040516

REACTIONS (2)
  - CEREBRAL HAEMORRHAGE [None]
  - COMA [None]
